FAERS Safety Report 6038629-X (Version None)
Quarter: 2009Q1

REPORT INFORMATION
  Report Type: 
  Country: None (occurrence: None)
  Receive Date: 20090114
  Receipt Date: 20090114
  Transmission Date: 20090719
  Serious: No
  Sender: FDA-Public Use
  Company Number: None

PATIENT
  Age: 56 Year
  Sex: Male
  Weight: 67.586 kg

DRUGS (3)
  1. SAMARIUM -153 [Suspect]
     Indication: PROSTATE CANCER
     Dosage: 135 MCI IV INJECTION
     Route: 042
     Dates: start: 20080320, end: 20080320
  2. ZOLADEX [Concomitant]
  3. CASODEX [Concomitant]

REACTIONS (1)
  - PLATELET COUNT DECREASED [None]
